FAERS Safety Report 4692719-2 (Version None)
Quarter: 2005Q2

REPORT INFORMATION
  Report Type: 
  Country: None (occurrence: None)
  Receive Date: 20050617
  Receipt Date: 20050607
  Transmission Date: 20051028
  Serious: Yes (Disabling)
  Sender: FDA-Public Use
  Company Number: US-MERCK-0506USA01128

PATIENT
  Sex: Male

DRUGS (2)
  1. VIOXX [Suspect]
     Route: 048
     Dates: start: 20000316, end: 20000602
  2. VIOXX [Suspect]
     Route: 048
     Dates: start: 20000901, end: 20040421

REACTIONS (1)
  - CEREBROVASCULAR ACCIDENT [None]
